FAERS Safety Report 5217939-X (Version None)
Quarter: 2007Q1

REPORT INFORMATION
  Report Type: 
  Country: None (occurrence: None)
  Receive Date: 20061130
  Receipt Date: 20060918
  Transmission Date: 20070707
  Serious: Yes (Hospitalization)
  Sender: FDA-Public Use
  Company Number: US200607000702

PATIENT
  Age: 52 Year
  Sex: Male
  Weight: 114.3 kg

DRUGS (8)
  1. ZYPREXA [Suspect]
     Dates: start: 20010101, end: 20030101
  2. HALDOL SOLUTAB [Concomitant]
  3. PROZAC [Concomitant]
  4. REMERON [Concomitant]
  5. RISPERIDONE [Concomitant]
  6. ZIPRASIDONE HCL [Concomitant]
  7. BUPROPION HCL [Concomitant]
  8. TRIMIPRAMINE MALEATE [Concomitant]

REACTIONS (5)
  - BLOOD CHOLESTEROL ABNORMAL [None]
  - BLOOD TRIGLYCERIDES INCREASED [None]
  - DIABETES MELLITUS [None]
  - HYPERTENSION [None]
  - METABOLIC DISORDER [None]
